FAERS Safety Report 6705856-5 (Version None)
Quarter: 2010Q2

REPORT INFORMATION
  Report Type: 
  Country: None (occurrence: None)
  Receive Date: 20100503
  Receipt Date: 20100428
  Transmission Date: 20101027
  Serious: Yes (Hospitalization)
  Sender: FDA-Public Use
  Company Number: CH-ASTRAZENECA-2010SE19301

PATIENT
  Age: 81 Year
  Sex: Female

DRUGS (17)
  1. SEROQUEL [Suspect]
     Route: 048
     Dates: start: 20090901, end: 20100402
  2. SEROQUEL [Suspect]
     Route: 048
     Dates: start: 20100403, end: 20100408
  3. SEROQUEL [Suspect]
     Route: 048
     Dates: start: 20100409, end: 20100409
  4. SEROQUEL [Suspect]
     Route: 048
     Dates: start: 20100410, end: 20100410
  5. SEROQUEL [Suspect]
     Route: 048
     Dates: start: 20100411
  6. VALIUM [Suspect]
     Route: 048
     Dates: start: 20100403, end: 20100406
  7. VALIUM [Suspect]
     Route: 048
     Dates: start: 20100407, end: 20100410
  8. VALIUM [Suspect]
     Route: 048
     Dates: start: 20100411
  9. DIOVAN HCT [Suspect]
     Route: 048
     Dates: start: 20090101
  10. METO ZEROK [Suspect]
     Route: 048
     Dates: start: 20080101
  11. CITALOPRAM [Concomitant]
     Route: 048
     Dates: start: 20100101, end: 20100401
  12. CITALOPRAM [Concomitant]
     Route: 048
     Dates: start: 20100402, end: 20100406
  13. METFORMIN [Concomitant]
     Route: 048
     Dates: start: 20080101
  14. DIAMICRON [Concomitant]
     Route: 048
     Dates: start: 20090101
  15. TORSEMIDE [Concomitant]
     Route: 048
     Dates: start: 20090101, end: 20100409
  16. TORSEMIDE [Concomitant]
     Route: 048
     Dates: start: 20100410
  17. MARCUMAR [Concomitant]
     Dosage: ACCORDING TO QUICK
     Route: 048
     Dates: start: 20060101

REACTIONS (1)
  - CIRCULATORY COLLAPSE [None]
